FAERS Safety Report 6809759-7 (Version None)
Quarter: 2010Q2

REPORT INFORMATION
  Report Type: 
  Country: None (occurrence: None)
  Receive Date: 20100630
  Receipt Date: 20100623
  Transmission Date: 20101027
  Serious: Yes (Other)
  Sender: FDA-Public Use
  Company Number: DE-NOVOPROD-282208

PATIENT
  Sex: Male
  Weight: 80 kg

DRUGS (7)
  1. NORDITROPIN [Suspect]
     Indication: GROWTH HORMONE DEFICIENCY
     Dosage: .2 MG, QD
     Route: 058
     Dates: start: 20070701, end: 20081202
  2. FLUVASTATIN [Concomitant]
     Dosage: UNK
     Route: 048
  3. RAMIPRIL [Concomitant]
     Dosage: UNK
     Route: 048
  4. TAMSULOSIN HCL [Concomitant]
     Dosage: UNK
     Route: 048
  5. CALCIUM CARBONATE [Concomitant]
     Route: 048
  6. VITAMIN A [Concomitant]
     Route: 048
  7. ASPIRIN [Concomitant]
     Dosage: UNK
     Route: 048

REACTIONS (1)
  - PITUITARY TUMOUR BENIGN [None]
